FAERS Safety Report 17775067 (Version 1)
Quarter: 2020Q2

REPORT INFORMATION
  Report Type: Spontaneous
  Country: US (occurrence: US)
  Receive Date: 20200512
  Receipt Date: 20200512
  Transmission Date: 20200714
  Serious: Yes (Hospitalization)
  Sender: FDA-Public Use
  Company Number: None

PATIENT
  Age: 75 Year
  Sex: Male

DRUGS (1)
  1. NOURIANZ [Suspect]
     Active Substance: ISTRADEFYLLINE
     Indication: PARKINSON^S DISEASE
     Route: 048
     Dates: start: 20200419, end: 20200508

REACTIONS (5)
  - Blood glucose increased [None]
  - Lethargy [None]
  - Therapy cessation [None]
  - Asthenia [None]
  - Movement disorder [None]

NARRATIVE: CASE EVENT DATE: 20200503
